FAERS Safety Report 9514714 (Version 1)
Quarter: 2013Q3

REPORT INFORMATION
  Report Type: Spontaneous
  Country: DE (occurrence: DE)
  Receive Date: 20130911
  Receipt Date: 20130911
  Transmission Date: 20140515
  Serious: Yes (Other)
  Sender: FDA-Public Use
  Company Number: DE-BAYER-2013-109238

PATIENT
  Age: 23 Year
  Sex: Female

DRUGS (1)
  1. CIPROBAY [Suspect]
     Dosage: 250, UNK, UNK

REACTIONS (3)
  - Acute abdomen [None]
  - Nausea [None]
  - Vomiting [None]
